FAERS Safety Report 19278404 (Version 1)
Quarter: 2021Q2

REPORT INFORMATION
  Report Type: Spontaneous
  Country: US (occurrence: US)
  Receive Date: 20210520
  Receipt Date: 20210520
  Transmission Date: 20210717
  Serious: No
  Sender: FDA-Public Use
  Company Number: None

PATIENT
  Age: 30 Year
  Sex: Female
  Weight: 83.92 kg

DRUGS (2)
  1. BUPROPION XL 300 MG TAB [Suspect]
     Active Substance: BUPROPION HYDROCHLORIDE
     Indication: ANXIETY
  2. BUPROPION XL 300 MG TAB [Suspect]
     Active Substance: BUPROPION HYDROCHLORIDE
     Indication: DEPRESSION
     Route: 048
     Dates: start: 20210411, end: 20210515

REACTIONS (8)
  - Manufacturing issue [None]
  - Depression [None]
  - Headache [None]
  - Crying [None]
  - Weight increased [None]
  - Apathy [None]
  - Depressed mood [None]
  - Fatigue [None]
